FAERS Safety Report 6955687-6 (Version None)
Quarter: 2010Q3

REPORT INFORMATION
  Report Type: 
  Country: None (occurrence: None)
  Receive Date: 20100830
  Receipt Date: 20100817
  Transmission Date: 20110219
  Serious: Yes (Other)
  Sender: FDA-Public Use
  Company Number: US-WATSON-2010-11416

PATIENT
  Age: 50 Year
  Sex: Male

DRUGS (2)
  1. TOPIRAMATE [Suspect]
     Indication: CONVULSION
     Dosage: UNK
  2. LAMOTRIGINE [Suspect]
     Indication: CONVULSION
     Dosage: UNK

REACTIONS (3)
  - DRUG INTERACTION [None]
  - IMPAIRED DRIVING ABILITY [None]
  - ROAD TRAFFIC ACCIDENT [None]
